FAERS Safety Report 4878994-X (Version None)
Quarter: 2006Q1

REPORT INFORMATION
  Report Type: 
  Country: None (occurrence: None)
  Receive Date: 20060112
  Receipt Date: 20050829
  Transmission Date: 20060701
  Serious: Yes (Hospitalization)
  Sender: FDA-Public Use
  Company Number: US-MERCK-0508USA04745

PATIENT
  Age: 50 Year
  Sex: Female
  Weight: 65 kg

DRUGS (3)
  1. VIOXX [Suspect]
     Indication: OSTEOARTHRITIS
     Route: 048
     Dates: start: 20000101, end: 20040101
  2. VIOXX [Suspect]
     Route: 048
     Dates: start: 20000101, end: 20040101
  3. ASPIRIN [Concomitant]
     Route: 065

REACTIONS (3)
  - CHEST PAIN [None]
  - MYOCARDIAL INFARCTION [None]
  - SINUSITIS [None]
